FAERS Safety Report 21190465 (Version 1)
Quarter: 2022Q3

REPORT INFORMATION
  Report Type: Spontaneous
  Country: GB (occurrence: GB)
  Receive Date: 20220809
  Receipt Date: 20220809
  Transmission Date: 20221027
  Serious: Yes (Other)
  Sender: FDA-Public Use
  Company Number: None

PATIENT
  Age: 64 Year
  Sex: Female
  Weight: 69 kg

DRUGS (4)
  1. ARIPIPRAZOLE [Suspect]
     Active Substance: ARIPIPRAZOLE
     Indication: Product used for unknown indication
     Dosage: 1 DOSAGE FORMS DAILY; MORNING, AS PER SPECIALIST, UNIT DOSE :  1 DOSAGE  FORMS , FREQUENCY : 1, FREQ
     Route: 048
     Dates: start: 20220708, end: 20220709
  2. ORLISTAT [Concomitant]
     Active Substance: ORLISTAT
     Indication: Product used for unknown indication
     Dosage: IMMEDIATELY BEFORE, DURING, OR, UNIT DOSE : 1 DOSAGE FORMS
     Dates: start: 20220624
  3. ZALURON XL [Concomitant]
     Indication: Product used for unknown indication
     Dosage: 1 DOSAGE FORMS DAILY; THERAPY DURATION : 981 DAYS
     Dates: start: 20191031, end: 20220708
  4. ZOPICLONE [Concomitant]
     Active Substance: ZOPICLONE
     Indication: Product used for unknown indication
     Dosage: 1 DOSAGE FORMS DAILY; AT NIGHT WHEN REQUIRED TO HELP, UNIT DOSE : 1 DOSAGE FORMS, FREQUENCY : 1, FRE
     Dates: start: 20220708, end: 20220715

REACTIONS (4)
  - Syncope [Unknown]
  - Nausea [Unknown]
  - Vomiting [Unknown]
  - Generalised tonic-clonic seizure [Recovered/Resolved]

NARRATIVE: CASE EVENT DATE: 20220709
